FAERS Safety Report 4485176-2 (Version None)
Quarter: 2004Q4

REPORT INFORMATION
  Report Type: 
  Country: None (occurrence: None)
  Receive Date: 20041026
  Receipt Date: 20040219
  Transmission Date: 20050328
  Serious: No
  Sender: FDA-Public Use
  Company Number: US-BRISTOL-MYERS SQUIBB COMPANY-12511655

PATIENT
  Sex: Female

DRUGS (8)
  1. GLUCOPHAGE XR [Suspect]
     Indication: BLOOD GLUCOSE INCREASED
     Route: 048
     Dates: start: 20030106, end: 20040219
  2. COPAXONE [Concomitant]
  3. SYNTHROID [Concomitant]
  4. EVISTA [Concomitant]
  5. ACTOS [Concomitant]
  6. ALTACE [Concomitant]
  7. GLUCOTROL [Concomitant]
  8. LIPITOR [Concomitant]

REACTIONS (1)
  - BLOOD GLUCOSE INCREASED [None]
